FAERS Safety Report 19382207 (Version 3)
Quarter: 2021Q2

REPORT INFORMATION
  Report Type: Spontaneous
  Country: US (occurrence: US)
  Receive Date: 20210607
  Receipt Date: 20210623
  Transmission Date: 20210717
  Serious: Yes (Other)
  Sender: FDA-Public Use
  Company Number: US-PFIZER INC-2021444884

PATIENT
  Age: 51 Year
  Sex: Female

DRUGS (1)
  1. XELJANZ XR [Suspect]
     Active Substance: TOFACITINIB CITRATE
     Dosage: UNK

REACTIONS (6)
  - Inflammatory marker increased [Unknown]
  - Joint effusion [Unknown]
  - Condition aggravated [Unknown]
  - Gait disturbance [Unknown]
  - Dyspnoea [Unknown]
  - Blepharospasm [Unknown]

NARRATIVE: CASE EVENT DATE: 20210419
